FAERS Safety Report 7753370-0 (Version None)
Quarter: 2011Q3

REPORT INFORMATION
  Report Type: 
  Country: None (occurrence: None)
  Receive Date: 20110913
  Receipt Date: 20110907
  Transmission Date: 20111222
  Serious: Yes (Hospitalization)
  Sender: FDA-Public Use
  Company Number: 2011S1001265

PATIENT
  Sex: Female

DRUGS (1)
  1. LIVALO [Suspect]
     Dosage: 4 MG; 1X; PO
     Route: 048

REACTIONS (1)
  - RHABDOMYOLYSIS [None]
